FAERS Safety Report 7665645-4 (Version None)
Quarter: 2011Q3

REPORT INFORMATION
  Report Type: 
  Country: None (occurrence: None)
  Receive Date: 20110806
  Receipt Date: 20110412
  Transmission Date: 20111222
  Serious: No
  Sender: FDA-Public Use
  Company Number: US-ABBOTT-11P-163-0718956-00

PATIENT
  Sex: Male
  Weight: 69.008 kg

DRUGS (10)
  1. STARLIX [Concomitant]
     Indication: DIABETES MELLITUS
  2. VITAMIN D [Concomitant]
     Indication: VITAMIN SUPPLEMENTATION
  3. NIASPAN [Suspect]
     Indication: BLOOD CHOLESTEROL INCREASED
     Dates: start: 20110411
  4. JANUVIA [Concomitant]
     Indication: DIABETES MELLITUS
  5. FERROUS SULFATE TAB [Concomitant]
     Indication: MINERAL SUPPLEMENTATION
  6. VITAMIN E [Concomitant]
     Indication: VITAMIN SUPPLEMENTATION
  7. ASPIRIN [Concomitant]
     Indication: THROMBOSIS PROPHYLAXIS
  8. WELCHOL [Concomitant]
     Indication: BLOOD CHOLESTEROL INCREASED
  9. METFORMIN HCL [Concomitant]
     Indication: DIABETES MELLITUS
  10. MULTI-VITAMIN [Concomitant]
     Indication: VITAMIN SUPPLEMENTATION

REACTIONS (2)
  - PRURITUS [None]
  - FEELING HOT [None]
